FAERS Safety Report 26007454 (Version 1)
Quarter: 2025Q4

REPORT INFORMATION
  Report Type: Report from Study
  Country: ZA (occurrence: ZA)
  Receive Date: 20251106
  Receipt Date: 20251106
  Transmission Date: 20260117
  Serious: Yes (Other)
  Sender: TEVA
  Company Number: ZA-TEVA-VS-3324520

PATIENT
  Age: 42 Year
  Sex: Female
  Weight: 51 kg

DRUGS (6)
  1. FINGOLIMOD HYDROCHLORIDE [Suspect]
     Active Substance: FINGOLIMOD HYDROCHLORIDE
     Indication: Multiple sclerosis
     Route: 048
     Dates: start: 20250416
  2. FINGOLIMOD HYDROCHLORIDE [Suspect]
     Active Substance: FINGOLIMOD HYDROCHLORIDE
     Indication: Multiple sclerosis
     Route: 048
     Dates: start: 20250416
  3. Tregretol [Concomitant]
     Indication: Epilepsy
     Dosage: DAILY IN 3 DIVIDED DOSES
     Route: 048
     Dates: start: 2016
  4. Tregretol [Concomitant]
     Indication: Epilepsy
     Route: 048
     Dates: start: 2016
  5. Serdept [Concomitant]
     Indication: Depression
     Route: 048
     Dates: start: 2017
  6. WARFARIN [Concomitant]
     Active Substance: WARFARIN
     Indication: Superior sagittal sinus thrombosis
     Dosage: FOR 2 YEARS

REACTIONS (8)
  - Hepatic enzyme increased [Not Recovered/Not Resolved]
  - Product dose omission in error [Unknown]
  - Fatigue [Unknown]
  - Abdominal pain [Unknown]
  - Stress [Unknown]
  - Nausea [Not Recovered/Not Resolved]
  - Headache [Recovering/Resolving]
  - Asthenopia [Unknown]

NARRATIVE: CASE EVENT DATE: 20250419
